FAERS Safety Report 8780519 (Version 1)
Quarter: 2012Q4

REPORT INFORMATION
  Report Type: Spontaneous
  Country: IT (occurrence: None)
  Receive Date: 20120829
  Receipt Date: 20120829
  Transmission Date: 20130627
  Serious: Yes (Life-Threatening)
  Sender: FDA-Public Use
  Company Number: NSR_00641_2012

PATIENT
  Age: 63 Year
  Sex: Female

DRUGS (4)
  1. ALLOPURINOL [Suspect]
  2. RAMIPRIL [Concomitant]
  3. ATENOLOL [Suspect]
  4. ASA [Concomitant]

REACTIONS (2)
  - Drug reaction with eosinophilia and systemic symptoms [None]
  - Heart rate increased [None]
